FAERS Safety Report 20082404 (Version 3)
Quarter: 2021Q4

REPORT INFORMATION
  Report Type: Spontaneous
  Country: US (occurrence: US)
  Receive Date: 20211117
  Receipt Date: 20211227
  Transmission Date: 20220303
  Serious: Yes (Other)
  Sender: FDA-Public Use
  Company Number: US-BAYER-2021A249401

PATIENT
  Age: 45 Year
  Sex: Female
  Weight: 97.052 kg

DRUGS (1)
  1. MIRENA [Suspect]
     Active Substance: LEVONORGESTREL
     Indication: Contraception
     Dosage: 20?G/DAY
     Route: 015
     Dates: start: 2015

REACTIONS (6)
  - Device breakage [Not Recovered/Not Resolved]
  - Embedded device [Not Recovered/Not Resolved]
  - Abdominal pain lower [Not Recovered/Not Resolved]
  - Abnormal uterine bleeding [None]
  - Pelvic pain [Not Recovered/Not Resolved]
  - Uterine leiomyoma [None]

NARRATIVE: CASE EVENT DATE: 20211012
